FAERS Safety Report 11655539 (Version 8)
Quarter: 2016Q1

REPORT INFORMATION
  Report Type: Report from Study
  Country: JP (occurrence: JP)
  Receive Date: 20151023
  Receipt Date: 20160329
  Transmission Date: 20160525
  Serious: Yes (Death, Hospitalization)
  Sender: FDA-Public Use
  Company Number: JP-ROCHE-1648490

PATIENT
  Age: 77 Year
  Sex: Male
  Weight: 43.4 kg

DRUGS (8)
  1. VINCRISTINE [Suspect]
     Active Substance: VINCRISTINE
     Indication: DIFFUSE LARGE B-CELL LYMPHOMA
     Dosage: INTRAVENOUS PUSH. DATE OF MOST RECENT DOSE (1.93 MG) OF VINCRISTINE PRIOR TO SAE ONSET: 29/AUG/2014
     Route: 040
     Dates: start: 20140501
  2. ASPIRIN. [Concomitant]
     Active Substance: ASPIRIN
     Indication: THROMBOSIS
     Route: 065
     Dates: start: 20150216
  3. CYCLOPHOSPHAMIDE. [Suspect]
     Active Substance: CYCLOPHOSPHAMIDE
     Indication: DIFFUSE LARGE B-CELL LYMPHOMA
     Dosage: DATE OF MOST RECENT DOSE (775 MG) OF CYCLOPHOSPHAMIDE PRIOR TO SAE ONSET: 29/AUG/2014
     Route: 042
     Dates: start: 20140501
  4. SENNA [Concomitant]
     Active Substance: SENNA LEAF\SENNOSIDES\SENNOSIDES A AND B
     Indication: CONSTIPATION
     Route: 065
     Dates: start: 20140423
  5. RITUXIMAB [Suspect]
     Active Substance: RITUXIMAB
     Indication: DIFFUSE LARGE B-CELL LYMPHOMA
     Dosage: DOSE CONCENTRATION OF LAST RITUXIMAB TAKEN: 517 MG/ML; DATE OF MOST RECENT DOSE OF RITUXIMAB PRIOR T
     Route: 042
     Dates: start: 20140430
  6. DOXORUBICIN [Suspect]
     Active Substance: DOXORUBICIN
     Indication: DIFFUSE LARGE B-CELL LYMPHOMA
     Dosage: DATE OF MOST RECENT DOSE (51.67 MG) OF DOXORUBICIN PRIOR TO SAE ONSET: 29/AUG/2014
     Route: 042
     Dates: start: 20140501
  7. PREDNISONE. [Suspect]
     Active Substance: PREDNISONE
     Indication: DIFFUSE LARGE B-CELL LYMPHOMA
     Dosage: DATE OF MOST RECENT DOSE (100 MG) OF PREDNISONE PRIOR TO SAE ONSET: 01/SEP/2014
     Route: 048
     Dates: start: 20140430
  8. MAGNESIUM OXIDE. [Concomitant]
     Active Substance: MAGNESIUM OXIDE
     Indication: CONSTIPATION
     Route: 065
     Dates: start: 20140419

REACTIONS (1)
  - Colon cancer [Fatal]

NARRATIVE: CASE EVENT DATE: 20151013
